FAERS Safety Report 14705185 (Version 1)
Quarter: 2018Q2

REPORT INFORMATION
  Report Type: Spontaneous
  Country: CN (occurrence: CN)
  Receive Date: 20180402
  Receipt Date: 20180402
  Transmission Date: 20180711
  Serious: Yes (Other)
  Sender: FDA-Public Use
  Company Number: CN-PFIZER INC-2018131126

PATIENT
  Age: 81 Year
  Sex: Male
  Weight: 80 kg

DRUGS (4)
  1. CELECOXIB. [Suspect]
     Active Substance: CELECOXIB
     Indication: PAIN
     Dosage: 200 MG, 2X/DAY
     Route: 048
     Dates: start: 20171215, end: 20171222
  2. BREVISCAPINE [Suspect]
     Active Substance: SCUTELLARIN
     Indication: CARDIOVASCULAR DISORDER
     Dosage: 50 MG, 1X/DAY
     Route: 041
     Dates: start: 20171212, end: 20171222
  3. COLCHICINE. [Suspect]
     Active Substance: COLCHICINE
     Indication: HYPERURICAEMIA
     Dosage: 0.5 G, 3X/DAY
     Route: 048
     Dates: start: 20171215, end: 20171222
  4. LI KE DUO [Suspect]
     Active Substance: PIPERACILLIN SODIUM\SULBACTAM SODIUM
     Indication: ANTI-INFECTIVE THERAPY
     Dosage: 3.75 MG, 2X/DAY
     Route: 041
     Dates: start: 20171215, end: 20171222

REACTIONS (5)
  - Pruritus [Recovering/Resolving]
  - Rash generalised [None]
  - Skin exfoliation [Recovering/Resolving]
  - Rash erythematous [Recovered/Resolved]
  - Dermatitis allergic [Recovering/Resolving]

NARRATIVE: CASE EVENT DATE: 20171216
